FAERS Safety Report 9236216 (Version 2)
Quarter: 2013Q2

REPORT INFORMATION
  Report Type: Spontaneous
  Country: VE (occurrence: VE)
  Receive Date: 20130417
  Receipt Date: 20130430
  Transmission Date: 20140414
  Serious: No
  Sender: FDA-Public Use
  Company Number: VE-PFIZER INC-2013120819

PATIENT
  Age: 79 Year
  Sex: Female

DRUGS (1)
  1. LYRICA [Suspect]
     Indication: PAIN
     Dosage: 1X/DAY
     Route: 048
     Dates: start: 201301, end: 201301

REACTIONS (3)
  - Speech disorder [Recovered/Resolved]
  - Reading disorder [Recovered/Resolved]
  - Impaired driving ability [Recovered/Resolved]
